FAERS Safety Report 4506205-3 (Version None)
Quarter: 2004Q4

REPORT INFORMATION
  Report Type: 
  Country: None (occurrence: None)
  Receive Date: 20041119
  Receipt Date: 20030605
  Transmission Date: 20050328
  Serious: Yes (Hospitalization, Disabling)
  Sender: FDA-Public Use
  Company Number: US-MERCK-0306USA00819

PATIENT
  Age: 38 Year
  Sex: Male
  Weight: 96 kg

DRUGS (5)
  1. VIOXX [Suspect]
     Indication: INFLAMMATION
     Route: 048
     Dates: start: 19990929, end: 19991109
  2. VIOXX [Suspect]
     Route: 048
     Dates: start: 19991110
  3. VIOXX [Suspect]
     Route: 048
     Dates: start: 20010801
  4. AMOXICILLIN [Concomitant]
     Route: 065
  5. LORTAB [Concomitant]
     Route: 065

REACTIONS (35)
  - ADVERSE EVENT [None]
  - ARTHRALGIA [None]
  - BILIARY NEOPLASM [None]
  - BLOOD GLUCOSE INCREASED [None]
  - BLOOD PRESSURE INCREASED [None]
  - BONE DISORDER [None]
  - BRONCHITIS [None]
  - BRONCHITIS ACUTE [None]
  - CARDIOMEGALY [None]
  - CHILLS [None]
  - COUGH [None]
  - DIARRHOEA [None]
  - HAEMARTHROSIS [None]
  - HAND FRACTURE [None]
  - HEART RATE INCREASED [None]
  - HIP ARTHROPLASTY [None]
  - HYPOKALAEMIA [None]
  - INFLUENZA [None]
  - INJURY [None]
  - JOINT EFFUSION [None]
  - JOINT SWELLING [None]
  - LETHARGY [None]
  - LIMB INJURY [None]
  - LOCALISED OSTEOARTHRITIS [None]
  - MONARTHRITIS [None]
  - PAIN IN EXTREMITY [None]
  - PCO2 DECREASED [None]
  - PHARYNGOLARYNGEAL PAIN [None]
  - POSTOPERATIVE INFECTION [None]
  - PYREXIA [None]
  - RESPIRATORY RATE INCREASED [None]
  - SINUSITIS [None]
  - TIBIA FRACTURE [None]
  - TRAUMATIC ARTHRITIS [None]
  - VOMITING [None]
